FAERS Safety Report 26153816 (Version 2)
Quarter: 2025Q4

REPORT INFORMATION
  Report Type: Spontaneous
  Country: EU (occurrence: EU)
  Receive Date: 20251214
  Receipt Date: 20251230
  Transmission Date: 20260117
  Serious: Yes (Hospitalization, Other)
  Sender: ALEXION PHARMACEUTICALS
  Company Number: EU-AMGEN-GRCSP2025236278

PATIENT
  Sex: Male
  Weight: 2.375 kg

DRUGS (2)
  1. ECULIZUMAB [Suspect]
     Active Substance: ECULIZUMAB
     Indication: Exposure during pregnancy
     Dosage: UNK
     Route: 065
  2. FILGRASTIM [Suspect]
     Active Substance: FILGRASTIM
     Indication: Exposure during pregnancy
     Dosage: UNK
     Route: 065

REACTIONS (2)
  - Low birth weight baby [Unknown]
  - Premature baby [Unknown]
